FAERS Safety Report 24292929 (Version 1)
Quarter: 2024Q3

REPORT INFORMATION
  Report Type: Spontaneous
  Country: US (occurrence: None)
  Receive Date: 20240906
  Receipt Date: 20240906
  Transmission Date: 20241017
  Serious: No
  Sender: DOMPE FARMACEUTICI
  Company Number: US-FARMAPROD-202311-3272

PATIENT
  Sex: Male

DRUGS (19)
  1. OXERVATE [Suspect]
     Active Substance: CENEGERMIN-BKBJ
     Indication: Neurotrophic keratopathy
     Route: 047
     Dates: start: 20231026
  2. NIFEDIPINE [Concomitant]
     Active Substance: NIFEDIPINE
  3. ESOMEPRAZOLE MAGNESIUM [Concomitant]
     Active Substance: ESOMEPRAZOLE MAGNESIUM
  4. VITAMIN D3 [Concomitant]
     Active Substance: CHOLECALCIFEROL
  5. VITAMIN C [Concomitant]
     Active Substance: ASCORBIC ACID
  6. VITAMIN B12 [Concomitant]
     Active Substance: CYANOCOBALAMIN
  7. TACROLIMUS [Concomitant]
     Active Substance: TACROLIMUS
  8. MYCOPHENOLATE MOFETIL [Concomitant]
     Active Substance: MYCOPHENOLATE MOFETIL
  9. METOPROLOL SUCCINATE [Concomitant]
     Active Substance: METOPROLOL SUCCINATE
  10. MAGNESIUM [Concomitant]
     Active Substance: MAGNESIUM
  11. LORATADINE [Concomitant]
     Active Substance: LORATADINE
  12. GLIPIZIDE [Concomitant]
     Active Substance: GLIPIZIDE
  13. FENOFIBRATE [Concomitant]
     Active Substance: FENOFIBRATE
  14. CLOPIDOGREL [Concomitant]
     Active Substance: CLOPIDOGREL BISULFATE
  15. TEMAZEPAM [Concomitant]
     Active Substance: TEMAZEPAM
  16. EYSUVIS [Concomitant]
     Active Substance: LOTEPREDNOL ETABONATE
  17. CLONIDINE [Concomitant]
     Active Substance: CLONIDINE
     Dosage: 0.2MG/24HR PATCH
  18. TOBRAMYCIN AND DEXAMETHASONE [Concomitant]
     Active Substance: DEXAMETHASONE\TOBRAMYCIN
  19. ATORVASTATIN CALCIUM [Concomitant]
     Active Substance: ATORVASTATIN CALCIUM

REACTIONS (2)
  - Eye pain [Unknown]
  - Photophobia [Unknown]
